FAERS Safety Report 9987154 (Version 1)
Quarter: 2014Q1

REPORT INFORMATION
  Report Type: Report from Study
  Country: US (occurrence: US)
  Receive Date: 20140307
  Receipt Date: 20140307
  Transmission Date: 20141002
  Serious: No
  Sender: FDA-Public Use
  Company Number: US-ABBVIE-13P-163-1081899-00

PATIENT
  Age: 52 Year
  Sex: Female

DRUGS (5)
  1. HUMIRA [Suspect]
     Indication: PSORIASIS
     Dates: start: 2010
  2. LISINOPRIL [Concomitant]
     Indication: HYPERTENSION
  3. METFORMIN [Concomitant]
     Indication: DIABETES MELLITUS
  4. MULTIVITAMINS [Concomitant]
     Indication: PRODUCT USED FOR UNKNOWN INDICATION
  5. PHETAMINE [Concomitant]
     Indication: OBESITY
     Dosage: EVERY DAY

REACTIONS (4)
  - Hypothyroidism [Unknown]
  - Hepatic steatosis [Recovering/Resolving]
  - Gallbladder polyp [Unknown]
  - Cholelithiasis [Unknown]
